FAERS Safety Report 10676330 (Version 1)
Quarter: 2014Q4

REPORT INFORMATION
  Report Type: Spontaneous
  Country: FR (occurrence: FR)
  Receive Date: 20141226
  Receipt Date: 20141226
  Transmission Date: 20150529
  Serious: Yes (Hospitalization, Other)
  Sender: FDA-Public Use
  Company Number: FR-ASTRAZENECA-2014SE98498

PATIENT
  Age: 80 Year
  Sex: Female
  Weight: 53 kg

DRUGS (12)
  1. BISOPROLOL [Suspect]
     Active Substance: BISOPROLOL
     Route: 048
     Dates: end: 20140721
  2. GLYCERYL TRINITRATE [Concomitant]
     Active Substance: NITROGLYCERIN
  3. CLOPIDOGREL [Concomitant]
     Active Substance: CLOPIDOGREL BISULFATE
  4. KARDEGIC [Concomitant]
     Active Substance: ASPIRIN LYSINE
  5. LASILIX [Concomitant]
     Active Substance: FUROSEMIDE
  6. INEXIUM [Suspect]
     Active Substance: ESOMEPRAZOLE
     Route: 048
     Dates: start: 201310, end: 20140721
  7. OXYCONTIN [Concomitant]
     Active Substance: OXYCODONE HYDROCHLORIDE
  8. TAHOR [Concomitant]
     Active Substance: ATORVASTATIN CALCIUM
  9. NOVONORM [Concomitant]
     Active Substance: REPAGLINIDE
  10. OXYNORM [Concomitant]
     Active Substance: OXYCODONE HYDROCHLORIDE
  11. COVERAM [Suspect]
     Active Substance: AMLODIPINE\PERINDOPRIL
     Dosage: 5 MG/ 10 MG. 1 DF DAILY
     Route: 048
     Dates: end: 20140721
  12. LEVOTHYROX [Concomitant]
     Active Substance: LEVOTHYROXINE

REACTIONS (6)
  - Hyperkalaemia [Recovered/Resolved]
  - Hypertensive crisis [Unknown]
  - Hyponatraemia [Recovered/Resolved]
  - Renal impairment [Unknown]
  - Loss of consciousness [Unknown]
  - C-reactive protein increased [Unknown]

NARRATIVE: CASE EVENT DATE: 20140704
